FAERS Safety Report 8506341-0 (Version None)
Quarter: 2012Q3

REPORT INFORMATION
  Report Type: 
  Country: None (occurrence: None)
  Receive Date: 20120712
  Receipt Date: 20120704
  Transmission Date: 20120928
  Serious: Yes (Other)
  Sender: FDA-Public Use
  Company Number: AU-JNJFOC-20120702851

PATIENT
  Sex: Female
  Weight: 87 kg

DRUGS (4)
  1. TOPAMAX [Suspect]
     Indication: MIGRAINE PROPHYLAXIS
     Dosage: 25-50 MG BD FOR MIGRAINE PREVENTION
     Route: 065
     Dates: start: 20111001
  2. VERAPAMIL [Concomitant]
     Indication: PRODUCT USED FOR UNKNOWN INDICATION
     Route: 065
  3. ORAL CONTRACEPTIVE NOS [Concomitant]
     Route: 048
  4. FLUTICASONE PROPIONATE/SALMETEROL [Concomitant]
     Dosage: 250 ACCUHALER
     Route: 065

REACTIONS (1)
  - HALLUCINATION, OLFACTORY [None]
